FAERS Safety Report 24981835 (Version 1)
Quarter: 2025Q1

REPORT INFORMATION
  Report Type: Spontaneous
  Country: US (occurrence: None)
  Receive Date: 20250217
  Receipt Date: 20250217
  Transmission Date: 20250408
  Serious: Yes (Other)
  Sender: FDA-CTU
  Company Number: None

PATIENT
  Age: 9 Year

DRUGS (1)
  1. VANCOMYCIN [Suspect]
     Active Substance: VANCOMYCIN

REACTIONS (8)
  - Documented hypersensitivity to administered product [None]
  - Pruritus [None]
  - Erythema [None]
  - Therapy interrupted [None]
  - Incorrect drug administration rate [None]
  - Device malfunction [None]
  - Pyrexia [None]
  - Flushing [None]
